FAERS Safety Report 20706272 (Version 1)
Quarter: 2022Q2

REPORT INFORMATION
  Report Type: Spontaneous
  Country: US (occurrence: US)
  Receive Date: 20220413
  Receipt Date: 20220413
  Transmission Date: 20220721
  Serious: No
  Sender: FDA-Public Use
  Company Number: US-SCILEX PHARMACEUTICALS INC.-2021SCX00023

PATIENT
  Age: 76 Year
  Sex: Female

DRUGS (6)
  1. ZTLIDO [Suspect]
     Active Substance: LIDOCAINE
     Indication: Neck pain
     Dosage: 1 PATCH, 1X/DAY APPLIED TO THE BASE OF THE NECK/GOING DOWN TO HER BACK (12 HOURS ON, 12 HOURS OFF)
     Route: 061
     Dates: start: 20210705
  2. ZTLIDO [Suspect]
     Active Substance: LIDOCAINE
     Indication: Back pain
  3. ZTLIDO [Suspect]
     Active Substance: LIDOCAINE
     Indication: Neuralgia
  4. CYCLOBENZAPRINE [Concomitant]
     Active Substance: CYCLOBENZAPRINE
     Dosage: USED ON OCCASION FOR 10 YEARS
  5. ASPIRIN [Concomitant]
     Active Substance: ASPIRIN
     Dosage: 81 MG, 1X/DAY
  6. NEURONTIN [Concomitant]
     Active Substance: GABAPENTIN

REACTIONS (9)
  - Hypertension [Unknown]
  - Stress [Unknown]
  - Palpitations [Unknown]
  - Fear [Unknown]
  - Presyncope [Unknown]
  - Product administration error [Recovered/Resolved]
  - Euphoric mood [Unknown]
  - Dizziness [Unknown]
  - Drug ineffective for unapproved indication [Unknown]

NARRATIVE: CASE EVENT DATE: 20210705
